FAERS Safety Report 14167602 (Version 2)
Quarter: 2018Q2

REPORT INFORMATION
  Report Type: Report from Study
  Country: US (occurrence: US)
  Receive Date: 20171108
  Receipt Date: 20180418
  Transmission Date: 20180711
  Serious: Yes (Hospitalization)
  Sender: FDA-Public Use
  Company Number: US-MITSUBISHI TANABE PHARMA CORPORATION-MPE2017-0023206

PATIENT
  Age: 70 Year
  Sex: Male
  Weight: 92.62 kg

DRUGS (2)
  1. RADICAVA [Suspect]
     Active Substance: EDARAVONE
     Route: 042
     Dates: start: 20171009, end: 20171018
  2. RADICAVA [Suspect]
     Active Substance: EDARAVONE
     Indication: AMYOTROPHIC LATERAL SCLEROSIS
     Route: 042
     Dates: start: 20170911, end: 20170924

REACTIONS (2)
  - Respiratory failure [Recovered/Resolved]
  - Pneumonia [Recovered/Resolved]

NARRATIVE: CASE EVENT DATE: 20171020
